FAERS Safety Report 19981324 (Version 1)
Quarter: 2021Q4

REPORT INFORMATION
  Report Type: Spontaneous
  Country: ES (occurrence: ES)
  Receive Date: 20211021
  Receipt Date: 20211021
  Transmission Date: 20220303
  Serious: Yes (Hospitalization, Other)
  Sender: FDA-Public Use
  Company Number: ES-MEDAC-2021001180

PATIENT
  Age: 75 Year
  Sex: Male

DRUGS (2)
  1. METHOTREXATE [Suspect]
     Active Substance: METHOTREXATE
     Indication: Keratoacanthoma
     Dosage: 15 MILLIGRAM ((TWO INTRALESIONAL INJECTIONS OF 15 AND 25 MG)
     Route: 026
  2. METHOTREXATE [Suspect]
     Active Substance: METHOTREXATE
     Dosage: 25 MILLIGRAM ((TWO INTRALESIONAL INJECTIONS OF 15 AND 25 MG)
     Route: 026

REACTIONS (2)
  - Pancytopenia [Recovered/Resolved]
  - Product use in unapproved indication [Unknown]
